FAERS Safety Report 19094946 (Version 4)
Quarter: 2021Q3

REPORT INFORMATION
  Report Type: Report from Study
  Country: None (occurrence: KR)
  Receive Date: 20210406
  Receipt Date: 20210901
  Transmission Date: 20211014
  Serious: Yes (Death, Hospitalization, Other)
  Sender: FDA-Public Use
  Company Number: KR-ABBVIE-21K-090-3844554-00

PATIENT
  Age: 64 Year
  Sex: Male
  Weight: 76 kg

DRUGS (120)
  1. OXYNORM [Concomitant]
     Active Substance: OXYCODONE HYDROCHLORIDE
     Dosage: INJ 20MG PER 2ML
     Route: 042
     Dates: start: 20210225, end: 20210226
  2. DENOGAN [Concomitant]
     Active Substance: PROPACETAMOL HYDROCHLORIDE
     Dosage: 1VIAL
     Route: 042
     Dates: start: 20210318, end: 20210319
  3. PETHIDINE HCL [Concomitant]
     Dosage: PETHIDINE HCL HANA
     Route: 042
     Dates: start: 20210228, end: 20210228
  4. LASIX [Concomitant]
     Active Substance: FUROSEMIDE
     Route: 042
     Dates: start: 20210304, end: 20210304
  5. LASIX [Concomitant]
     Active Substance: FUROSEMIDE
     Route: 042
     Dates: start: 20210323, end: 20210323
  6. BENZPHETAMINE HYDROCHLORIDE. [Concomitant]
     Active Substance: BENZPHETAMINE HYDROCHLORIDE
     Indication: PROPHYLAXIS
     Dosage: K 40
     Route: 042
     Dates: start: 20210226, end: 20210226
  7. MACPERAN [Concomitant]
     Active Substance: METOCLOPRAMIDE HYDROCHLORIDE
     Route: 042
     Dates: start: 20210305, end: 20210308
  8. HEXAMEDIN [Concomitant]
     Indication: PROPHYLAXIS
     Dosage: 1 BOTTLE 0.12 PERCENT  250 ML
     Route: 004
     Dates: start: 20210303, end: 20210306
  9. PEPTAZOLE [Concomitant]
     Dosage: 1VIAL
     Route: 042
     Dates: start: 20210311, end: 20210311
  10. PEPTAZOLE [Concomitant]
     Dosage: 1VIAL
     Route: 042
     Dates: start: 20210322, end: 20210325
  11. EFFEXIN [Concomitant]
     Indication: INFECTION PROPHYLAXIS
     Dosage: 1TUBE
     Route: 047
     Dates: start: 20210304, end: 20210306
  12. SEROQUEL [Concomitant]
     Active Substance: QUETIAPINE FUMARATE
     Route: 048
     Dates: start: 20210317, end: 20210317
  13. TROPHERINE [Concomitant]
     Dosage: 1BOTTLE
     Route: 047
     Dates: start: 20210323, end: 20210323
  14. TEICON [Concomitant]
     Indication: LYMPHADENITIS
     Dosage: 1VIAL
     Route: 042
     Dates: start: 20210318, end: 20210318
  15. VENCLEXTA [Suspect]
     Active Substance: VENETOCLAX
     Indication: CHRONIC LYMPHOCYTIC LEUKAEMIA
     Route: 048
     Dates: start: 20210224, end: 20210302
  16. PETHIDINE HCL [Concomitant]
     Dosage: PETHIDINE HCL HANA
     Route: 042
     Dates: start: 20210306, end: 20210307
  17. PETHIDINE HCL [Concomitant]
     Dosage: PETHIDINE HCL HANA
     Route: 042
     Dates: start: 20210308, end: 20210309
  18. GASTINE [Concomitant]
     Indication: GASTROINTESTINAL DISORDER PROPHYLAXIS
     Route: 048
     Dates: start: 20201030, end: 20210301
  19. SYLCON [Concomitant]
     Active Substance: CALCIUM POLYCARBOPHIL
     Route: 048
     Dates: start: 20210225, end: 20210301
  20. FORLAX [Concomitant]
     Active Substance: POLYETHYLENE GLYCOL 4000
     Indication: CONSTIPATION
     Route: 048
     Dates: start: 20210225, end: 20210225
  21. LASIX [Concomitant]
     Active Substance: FUROSEMIDE
     Route: 042
     Dates: start: 20210305, end: 20210305
  22. LASIX [Concomitant]
     Active Substance: FUROSEMIDE
     Route: 042
     Dates: start: 20210324, end: 20210324
  23. LASIX [Concomitant]
     Active Substance: FUROSEMIDE
     Route: 042
     Dates: start: 20210325, end: 20210325
  24. TRIZELE [Concomitant]
     Active Substance: METRONIDAZOLE
     Dosage: 4BOTTLE
     Route: 042
     Dates: start: 20210316, end: 20210318
  25. LIDOCAINE. [Concomitant]
     Active Substance: LIDOCAINE
     Indication: ANAESTHESIA PROCEDURE
     Dosage: 1VIAL
     Route: 058
     Dates: start: 20210302, end: 20210302
  26. PEPTAZOLE [Concomitant]
     Dosage: 1VIAL
     Route: 042
     Dates: start: 20210313, end: 20210315
  27. TRANEXAMIC ACID. [Concomitant]
     Active Substance: TRANEXAMIC ACID
     Indication: PANCYTOPENIA
     Dosage: 500MG PER 5ML
     Route: 042
     Dates: start: 20210305, end: 20210307
  28. CANCIDAS [Concomitant]
     Active Substance: CASPOFUNGIN ACETATE
     Indication: LYMPHADENITIS
     Dosage: 1VIAL
     Route: 042
     Dates: start: 20210308, end: 20210308
  29. OXYNORM [Concomitant]
     Active Substance: OXYCODONE HYDROCHLORIDE
     Dosage: INJ 20MG PER 2ML
     Route: 042
     Dates: start: 20210301, end: 20210301
  30. MEROPEN [Concomitant]
     Active Substance: MEROPENEM
     Indication: LYMPHADENITIS
     Dosage: 6VIAL MEROPEN YUHAN
     Route: 042
     Dates: start: 20210223, end: 20210225
  31. PETHIDINE HCL [Concomitant]
     Indication: ABDOMINAL PAIN
     Dosage: PETHIDINE HCL HANA
     Route: 042
     Dates: start: 20210224, end: 20210224
  32. MUTERAN [Concomitant]
     Active Substance: ACETYLCYSTEINE
     Indication: RENAL DISORDER PROPHYLAXIS
     Dosage: INJECTION 100MG PER ML 6ML
     Route: 042
     Dates: start: 20210224, end: 20210224
  33. PENIRAMIN [Concomitant]
     Indication: PRURITUS
     Route: 042
     Dates: start: 20210311, end: 20210311
  34. REMERON [Concomitant]
     Active Substance: MIRTAZAPINE
     Indication: DEPRESSION
     Dosage: TABLET 15 MG
     Route: 048
     Dates: start: 20201208, end: 20210224
  35. LEGALON [Concomitant]
     Active Substance: DIETARY SUPPLEMENT\HERBALS\MILK THISTLE
     Indication: PROPHYLAXIS
     Dosage: 140
     Route: 048
     Dates: start: 20210218, end: 20210224
  36. TEICON [Concomitant]
     Dosage: 1VIAL
     Route: 042
     Dates: start: 20210308, end: 20210309
  37. MAXIPIME [Concomitant]
     Active Substance: CEFEPIME HYDROCHLORIDE
     Dosage: 6VIAL
     Route: 042
     Dates: start: 20210227, end: 20210306
  38. TRIZELE [Concomitant]
     Active Substance: METRONIDAZOLE
     Indication: LYMPHADENITIS
     Dosage: 4BOTTLE
     Route: 042
     Dates: start: 20210226, end: 20210226
  39. TRIZELE [Concomitant]
     Active Substance: METRONIDAZOLE
     Dosage: 3BOTTLE
     Route: 042
     Dates: start: 20210227, end: 20210306
  40. NUTRIFLEX PERI [Concomitant]
     Active Substance: AMINO ACIDS\DEXTROSE\ELECTROLYTES NOS
     Indication: NUTRITIONAL SUPPLEMENTATION
     Route: 065
     Dates: start: 20210226, end: 20210309
  41. BENZPHETAMINE HYDROCHLORIDE. [Concomitant]
     Active Substance: BENZPHETAMINE HYDROCHLORIDE
     Route: 042
     Dates: start: 20210324, end: 20210325
  42. MACPERAN [Concomitant]
     Active Substance: METOCLOPRAMIDE HYDROCHLORIDE
     Route: 042
     Dates: start: 20210311, end: 20210311
  43. KEROMIN [Concomitant]
     Indication: ABDOMINAL PAIN
     Route: 042
     Dates: start: 20210309, end: 20210326
  44. RAMSET [Concomitant]
     Indication: PROPHYLAXIS OF NAUSEA AND VOMITING
     Route: 042
     Dates: start: 20210309, end: 20210326
  45. WINUF [Concomitant]
     Indication: NUTRITIONAL SUPPLEMENTATION
     Route: 042
     Dates: start: 20210224, end: 20210225
  46. HUMULIN R [Concomitant]
     Active Substance: INSULIN HUMAN
     Indication: HYPERGLYCAEMIA
     Route: 042
     Dates: start: 20210323, end: 20210323
  47. OXYNORM [Concomitant]
     Active Substance: OXYCODONE HYDROCHLORIDE
     Dosage: INJ 20MG PER 2ML
     Route: 042
     Dates: start: 20210306, end: 20210307
  48. DENOGAN [Concomitant]
     Active Substance: PROPACETAMOL HYDROCHLORIDE
     Dosage: 2VIAL
     Route: 042
     Dates: start: 20210301, end: 20210301
  49. DENOGAN [Concomitant]
     Active Substance: PROPACETAMOL HYDROCHLORIDE
     Dosage: 1VIAL
     Route: 042
     Dates: start: 20210302, end: 20210304
  50. DENOGAN [Concomitant]
     Active Substance: PROPACETAMOL HYDROCHLORIDE
     Dosage: 2VIAL
     Route: 042
     Dates: start: 20210305, end: 20210307
  51. CELEBREX [Concomitant]
     Active Substance: CELECOXIB
     Indication: INTERVERTEBRAL DISC PROTRUSION
     Route: 048
     Dates: start: 20181122, end: 20210224
  52. PENIRAMIN [Concomitant]
     Indication: PROPHYLAXIS
     Route: 042
     Dates: start: 20210223, end: 20210224
  53. CYMBALTA [Concomitant]
     Active Substance: DULOXETINE HYDROCHLORIDE
     Indication: DEPRESSION
     Route: 048
     Dates: start: 20210218, end: 20210224
  54. RESOLOR [Concomitant]
     Active Substance: PRUCALOPRIDE SUCCINATE
     Indication: CONSTIPATION
     Route: 048
     Dates: start: 20190806, end: 20210302
  55. LASIX [Concomitant]
     Active Substance: FUROSEMIDE
     Route: 042
     Dates: start: 20210301, end: 20210301
  56. LASIX [Concomitant]
     Active Substance: FUROSEMIDE
     Route: 042
     Dates: start: 20210309, end: 20210309
  57. LASIX [Concomitant]
     Active Substance: FUROSEMIDE
     Route: 042
     Dates: start: 20210317, end: 20210318
  58. LASIX [Concomitant]
     Active Substance: FUROSEMIDE
     Route: 042
     Dates: start: 20210319, end: 20210321
  59. TEICON [Concomitant]
     Dosage: 1VIAL
     Route: 042
     Dates: start: 20210227, end: 20210302
  60. TEICON [Concomitant]
     Dosage: 2VIAL
     Route: 042
     Dates: start: 20210307, end: 20210307
  61. PEPTAZOLE [Concomitant]
     Indication: GASTROINTESTINAL DISORDER PROPHYLAXIS
     Dosage: 1VIAL
     Route: 042
     Dates: start: 20210303, end: 20210306
  62. FENTANYL CITRATE. [Concomitant]
     Active Substance: FENTANYL CITRATE
     Indication: LYMPHADENITIS
     Dosage: 500 MICROGRAM PER 10ML
     Route: 042
     Dates: start: 20210309, end: 20210326
  63. CEFTRIAXONE. [Concomitant]
     Active Substance: CEFTRIAXONE
     Indication: LYMPHADENITIS
     Dosage: 1VIAL
     Route: 042
     Dates: start: 20210316, end: 20210319
  64. HUMULIN R [Concomitant]
     Active Substance: INSULIN HUMAN
     Route: 042
     Dates: start: 20210325, end: 20210325
  65. VENCLEXTA [Suspect]
     Active Substance: VENETOCLAX
     Route: 048
     Dates: start: 20210312, end: 20210318
  66. VENCLEXTA [Suspect]
     Active Substance: VENETOCLAX
     Route: 048
     Dates: start: 20210319, end: 20210319
  67. OXYNORM [Concomitant]
     Active Substance: OXYCODONE HYDROCHLORIDE
     Indication: ABDOMINAL PAIN
     Dosage: INJ 20MG PER 2ML
     Route: 042
     Dates: start: 20210222, end: 20210224
  68. OXYNORM [Concomitant]
     Active Substance: OXYCODONE HYDROCHLORIDE
     Dosage: INJ 20MG PER 2ML
     Route: 042
     Dates: start: 20210309, end: 20210309
  69. DENOGAN [Concomitant]
     Active Substance: PROPACETAMOL HYDROCHLORIDE
     Dosage: 1VIAL
     Route: 042
     Dates: start: 20210311, end: 20210311
  70. PETHIDINE HCL [Concomitant]
     Dosage: PETHIDINE HCL HANA
     Route: 042
     Dates: start: 20210301, end: 20210301
  71. URSA [Concomitant]
     Active Substance: URSODIOL
     Indication: PROPHYLAXIS
     Dosage: SC
     Route: 048
     Dates: start: 20210218, end: 20210224
  72. SYLCON [Concomitant]
     Active Substance: CALCIUM POLYCARBOPHIL
     Indication: GASTROINTESTINAL DISORDER PROPHYLAXIS
     Route: 048
     Dates: start: 20210225, end: 20210225
  73. LASIX [Concomitant]
     Active Substance: FUROSEMIDE
     Route: 042
     Dates: start: 20210303, end: 20210303
  74. LASIX [Concomitant]
     Active Substance: FUROSEMIDE
     Route: 042
     Dates: start: 20210307, end: 20210307
  75. LASIX [Concomitant]
     Active Substance: FUROSEMIDE
     Route: 042
     Dates: start: 20210316, end: 20210316
  76. TEICON [Concomitant]
     Indication: LYMPHADENITIS
     Dosage: 2VIAL
     Route: 042
     Dates: start: 20210226, end: 20210226
  77. MAXIPIME [Concomitant]
     Active Substance: CEFEPIME HYDROCHLORIDE
     Indication: LYMPHADENITIS
     Dosage: 8VIAL
     Route: 042
     Dates: start: 20210226, end: 20210226
  78. MACPERAN [Concomitant]
     Active Substance: METOCLOPRAMIDE HYDROCHLORIDE
     Route: 042
     Dates: start: 20210318, end: 20210325
  79. MEROPENEM. [Concomitant]
     Active Substance: MEROPENEM
     Indication: LYMPHADENITIS
     Dosage: 6VIAL
     Route: 042
     Dates: start: 20210307, end: 20210324
  80. SEROQUEL [Concomitant]
     Active Substance: QUETIAPINE FUMARATE
     Route: 048
     Dates: start: 20210318, end: 20210319
  81. PETHIDINE HCL [Concomitant]
     Dosage: PETHIDINE HCL HANA
     Route: 042
     Dates: start: 20210226, end: 20210226
  82. WINUF PERI [Concomitant]
     Active Substance: AMINO ACIDS\DEXTROSE\ELECTROLYTES NOS\SOYBEAN OIL\VITAMINS
     Indication: NUTRITIONAL SUPPLEMENTATION
     Route: 042
     Dates: start: 20210221, end: 20210225
  83. MEGACE F [Concomitant]
     Indication: PROPHYLAXIS
     Route: 048
     Dates: start: 20201030, end: 20210224
  84. ZYLORIC [Concomitant]
     Active Substance: ALLOPURINOL
     Indication: CHEMOTHERAPY SIDE EFFECT PROPHYLAXIS
     Route: 048
     Dates: start: 20210223, end: 20210224
  85. LASIX [Concomitant]
     Active Substance: FUROSEMIDE
     Indication: PROPHYLAXIS
     Route: 042
     Dates: start: 20210226, end: 20210226
  86. LASIX [Concomitant]
     Active Substance: FUROSEMIDE
     Route: 042
     Dates: start: 20210306, end: 20210306
  87. LASIX [Concomitant]
     Active Substance: FUROSEMIDE
     Route: 042
     Dates: start: 20210310, end: 20210310
  88. LASIX [Concomitant]
     Active Substance: FUROSEMIDE
     Route: 042
     Dates: start: 20210313, end: 20210314
  89. LASIX [Concomitant]
     Active Substance: FUROSEMIDE
     Route: 042
     Dates: start: 20210322, end: 20210322
  90. K?CONTIN [Concomitant]
     Active Substance: POTASSIUM CHLORIDE
     Indication: HYPOKALAEMIA
     Route: 048
     Dates: start: 20210306, end: 20210307
  91. CANCIDAS [Concomitant]
     Active Substance: CASPOFUNGIN ACETATE
     Route: 042
     Dates: start: 20210309, end: 20210325
  92. BEAROBAN [Concomitant]
     Indication: SKIN DISORDER PROPHYLAXIS
     Dosage: ONCE
     Route: 061
     Dates: start: 20210319, end: 20210319
  93. POTASSIUM CHLORIDE IN SODIUM CHLORIDE [Concomitant]
     Active Substance: POTASSIUM CHLORIDE\SODIUM CHLORIDE
     Indication: PRODUCT USED FOR UNKNOWN INDICATION
     Dosage: NACL.K40 INJ
  94. OXYNORM [Concomitant]
     Active Substance: OXYCODONE HYDROCHLORIDE
     Dosage: INJ 20MG PER 2ML
     Route: 042
     Dates: start: 20210227, end: 20210227
  95. OXYNORM [Concomitant]
     Active Substance: OXYCODONE HYDROCHLORIDE
     Dosage: INJ 20MG PER 2ML
     Route: 042
     Dates: start: 20210228, end: 20210228
  96. OXYNORM [Concomitant]
     Active Substance: OXYCODONE HYDROCHLORIDE
     Dosage: INJ 20MG PER 2ML
     Route: 042
     Dates: start: 20210308, end: 20210308
  97. DENOGAN [Concomitant]
     Active Substance: PROPACETAMOL HYDROCHLORIDE
     Indication: LYMPHADENITIS
     Dosage: 1 VIAL
     Route: 042
     Dates: start: 20210226, end: 20210228
  98. DENOGAN [Concomitant]
     Active Substance: PROPACETAMOL HYDROCHLORIDE
     Dosage: 1VIAL
     Route: 042
     Dates: start: 20210308, end: 20210308
  99. DENOGAN [Concomitant]
     Active Substance: PROPACETAMOL HYDROCHLORIDE
     Dosage: 2VIAL
     Route: 042
     Dates: start: 20210312, end: 20210312
  100. MAGO [Concomitant]
     Indication: GASTROINTESTINAL DISORDER PROPHYLAXIS
     Route: 048
     Dates: start: 20190419, end: 20210302
  101. LASIX [Concomitant]
     Active Substance: FUROSEMIDE
     Route: 042
     Dates: start: 20210311, end: 20210311
  102. LASIX [Concomitant]
     Active Substance: FUROSEMIDE
     Route: 042
     Dates: start: 20210315, end: 20210315
  103. BENZPHETAMINE HYDROCHLORIDE. [Concomitant]
     Active Substance: BENZPHETAMINE HYDROCHLORIDE
     Route: 042
     Dates: start: 20210319, end: 20210321
  104. ALBUMIN [Concomitant]
     Active Substance: ALBUMIN HUMAN
     Indication: HYPOALBUMINAEMIA
     Dosage: ALBUMIN GREENCROSS INJECTION 20 PERCENT 100ML
     Route: 042
     Dates: start: 20210226, end: 20210226
  105. MACPERAN [Concomitant]
     Active Substance: METOCLOPRAMIDE HYDROCHLORIDE
     Route: 042
     Dates: start: 20210313, end: 20210317
  106. CANESTEN [Concomitant]
     Active Substance: CLOTRIMAZOLE
     Indication: SKIN ABRASION
     Dosage: ONCE
     Route: 061
     Dates: start: 20210306, end: 20210306
  107. ORAMEDY [Concomitant]
     Active Substance: TRIAMCINOLONE ACETONIDE
     Indication: PROPHYLAXIS
     Dosage: 1TUBE 1 MG PER GRAM
     Route: 048
     Dates: start: 20210322, end: 20210322
  108. ZYPREXA ZYDIS [Concomitant]
     Active Substance: OLANZAPINE
     Indication: DEPRESSION
     Route: 048
     Dates: start: 20210323, end: 20210323
  109. HUMULIN R [Concomitant]
     Active Substance: INSULIN HUMAN
     Route: 042
     Dates: start: 20210324, end: 20210324
  110. VENCLEXTA [Suspect]
     Active Substance: VENETOCLAX
     Route: 048
     Dates: start: 20210305, end: 20210311
  111. IRCODON [Concomitant]
     Active Substance: OXYCODONE HYDROCHLORIDE
     Indication: ABDOMINAL PAIN
     Route: 048
     Dates: start: 20210224, end: 20210224
  112. SOLONDO [Concomitant]
     Active Substance: PREDNISOLONE
     Indication: CHEMOTHERAPY SIDE EFFECT PROPHYLAXIS
     Route: 048
     Dates: start: 20210223, end: 20210224
  113. LASIX [Concomitant]
     Active Substance: FUROSEMIDE
     Route: 042
     Dates: start: 20210228, end: 20210228
  114. LASIX [Concomitant]
     Active Substance: FUROSEMIDE
     Route: 042
     Dates: start: 20210308, end: 20210308
  115. TEICON [Concomitant]
     Dosage: 1VIAL
     Route: 042
     Dates: start: 20210317, end: 20210325
  116. NEUTROGIN [Concomitant]
     Active Substance: LENOGRASTIM
     Indication: PANCYTOPENIA
     Dosage: 1VIAL
     Route: 058
     Dates: start: 20210226, end: 20210325
  117. MACPERAN [Concomitant]
     Active Substance: METOCLOPRAMIDE HYDROCHLORIDE
     Indication: GASTROINTESTINAL DISORDER PROPHYLAXIS
     Route: 042
     Dates: start: 20210302, end: 20210304
  118. PEPTAZOLE [Concomitant]
     Dosage: 1VIAL
     Route: 042
     Dates: start: 20210320, end: 20210320
  119. SEROQUEL [Concomitant]
     Active Substance: QUETIAPINE FUMARATE
     Indication: NEUROPATHY PERIPHERAL
     Route: 048
     Dates: start: 20210316, end: 20210316
  120. TROPHERINE [Concomitant]
     Indication: MYDRIASIS
     Dosage: 1BOTTLE
     Route: 047
     Dates: start: 20210318, end: 20210318

REACTIONS (6)
  - Abdominal pain [Recovered/Resolved]
  - Retinal haemorrhage [Recovered/Resolved]
  - Skin abrasion [Recovered/Resolved]
  - Pruritus [Recovered/Resolved]
  - Hypokalaemia [Recovered/Resolved]
  - Sepsis [Fatal]

NARRATIVE: CASE EVENT DATE: 20210301
